FAERS Safety Report 6856823-2 (Version None)
Quarter: 2010Q3

REPORT INFORMATION
  Report Type: 
  Country: None (occurrence: None)
  Receive Date: 20100714
  Receipt Date: 20100628
  Transmission Date: 20110219
  Serious: Yes (Life-Threatening, Hospitalization)
  Sender: FDA-Public Use
  Company Number: APP201000573

PATIENT
  Age: 42 Year
  Sex: Female

DRUGS (3)
  1. DOXORUBICIN HCL [Suspect]
     Indication: BREAST CANCER
     Dosage: 6 CYCLES OF 60 MG/M2
  2. CYCLOPHOSPHAMIDE [Suspect]
     Indication: BREAST CANCER
     Dosage: 6 CYCLES OF 900 MG
  3. TRASTUZUMAB (TRASTUZUMAB) [Suspect]
     Dosage: 6 MG/KG, FOR 3 MONTHS

REACTIONS (5)
  - CARDIAC FAILURE CONGESTIVE [None]
  - INTRACARDIAC THROMBUS [None]
  - LUNG DISORDER [None]
  - MYOCARDITIS [None]
  - RESPIRATORY TRACT INFECTION [None]
